FAERS Safety Report 13628212 (Version 1)
Quarter: 2017Q2

REPORT INFORMATION
  Report Type: Spontaneous
  Country: US (occurrence: US)
  Receive Date: 20170608
  Receipt Date: 20170608
  Transmission Date: 20170830
  Serious: Yes (Hospitalization)
  Sender: FDA-Public Use
  Company Number: None

PATIENT
  Age: 56 Year
  Sex: Male

DRUGS (1)
  1. PANTOPRAZOLE [Suspect]
     Active Substance: PANTOPRAZOLE
     Indication: GASTROINTESTINAL HAEMORRHAGE
     Dates: start: 20170520, end: 20170524

REACTIONS (3)
  - Leukopenia [None]
  - Neutropenia [None]
  - Haemoglobin decreased [None]

NARRATIVE: CASE EVENT DATE: 20170523
